FAERS Safety Report 12806346 (Version 1)
Quarter: 2016Q4

REPORT INFORMATION
  Report Type: Spontaneous
  Country: US (occurrence: US)
  Receive Date: 20161003
  Receipt Date: 20161003
  Transmission Date: 20170207
  Serious: Yes (Life-Threatening, Hospitalization, Disabling)
  Sender: FDA-Public Use
  Company Number: None

PATIENT
  Age: 81 Year
  Sex: Female
  Weight: 45 kg

DRUGS (12)
  1. RECLAST [Suspect]
     Active Substance: ZOLEDRONIC ACID
     Indication: OSTEOPOROSIS
     Dosage: ?          OTHER FREQUENCY:ONCE YEAR;?
     Route: 042
     Dates: start: 20160830
  2. PREDNISONE. [Concomitant]
     Active Substance: PREDNISONE
  3. ATENOLOL. [Concomitant]
     Active Substance: ATENOLOL
  4. LEVOXYL [Concomitant]
     Active Substance: LEVOTHYROXINE SODIUM
  5. AFEDITAB [Concomitant]
  6. LEFLUNOMIDE. [Concomitant]
     Active Substance: LEFLUNOMIDE
  7. MELOXICAM. [Concomitant]
     Active Substance: MELOXICAM
  8. FOLIC ACID. [Concomitant]
     Active Substance: FOLIC ACID
  9. CALCIUM [Concomitant]
     Active Substance: CALCIUM
  10. AVAPRO [Concomitant]
     Active Substance: IRBESARTAN
  11. ZOCOR [Concomitant]
     Active Substance: SIMVASTATIN
  12. HYDROXYCHLOROQUINE [Concomitant]
     Active Substance: HYDROXYCHLOROQUINE

REACTIONS (3)
  - Malaise [None]
  - Heart rate increased [None]
  - Blood pressure increased [None]

NARRATIVE: CASE EVENT DATE: 20160904
